FAERS Safety Report 5214969-9 (Version None)
Quarter: 2006Q4

REPORT INFORMATION
  Report Type: 
  Country: None (occurrence: None)
  Receive Date: 20061108
  Receipt Date: 20060612
  Transmission Date: 20070319
  Serious: Yes (Hospitalization)
  Sender: FDA-Public Use
  Company Number: US200606003228

PATIENT
  Age: 17 Year
  Sex: Male

DRUGS (3)
  1. PROZAC [Suspect]
     Dosage: 80 MG, DAILY (1/D)
  2. REMERON [Concomitant]
  3. METHYLPHENIDATE HCL [Concomitant]

REACTIONS (3)
  - INTENTIONAL OVERDOSE [None]
  - SEROTONIN SYNDROME [None]
  - SUICIDE ATTEMPT [None]
